FAERS Safety Report 9821853 (Version 2)
Quarter: 2014Q3

REPORT INFORMATION
  Report Type: Spontaneous
  Country: US (occurrence: US)
  Receive Date: 20140116
  Receipt Date: 20140815
  Transmission Date: 20150326
  Serious: No
  Sender: FDA-Public Use
  Company Number: US-009507513-1401USA005603

PATIENT
  Sex: Female
  Weight: 88.89 kg

DRUGS (1)
  1. NUVARING [Suspect]
     Active Substance: ETHINYL ESTRADIOL\ETONOGESTREL
     Dosage: UNK
     Route: 067
     Dates: start: 20090910, end: 20110701

REACTIONS (4)
  - Furuncle [Unknown]
  - Ovarian cyst [Unknown]
  - Deep vein thrombosis [Unknown]
  - Depression [Unknown]

NARRATIVE: CASE EVENT DATE: 20110621
